APPROVED DRUG PRODUCT: NAPROSYN
Active Ingredient: NAPROXEN
Strength: 25MG/ML
Dosage Form/Route: SUSPENSION;ORAL
Application: N018965 | Product #001 | TE Code: AB
Applicant: ATNAHS PHARMA US LTD
Approved: Mar 23, 1987 | RLD: Yes | RS: No | Type: RX